FAERS Safety Report 7723089-0 (Version None)
Quarter: 2011Q3

REPORT INFORMATION
  Report Type: 
  Country: None (occurrence: None)
  Receive Date: 20110826
  Receipt Date: 20110811
  Transmission Date: 20111222
  Serious: Yes (Life-Threatening, Other)
  Sender: FDA-Public Use
  Company Number: 1000021730

PATIENT
  Age: 54 Year
  Sex: Female

DRUGS (3)
  1. CITALOPRAM HYDROBROMIDE [Suspect]
     Dosage: 30, 20  MG (30, 20  MG, 1 IN 1 D) ORAL
     Route: 048
  2. CITALOPRAM HYDROBROMIDE [Suspect]
     Dosage: 20 MG (20 MG, 1 IN 1 D)
  3. PRAZEPAM [Concomitant]

REACTIONS (20)
  - GASTRIC DISORDER [None]
  - NEUROSIS [None]
  - SUICIDE ATTEMPT [None]
  - SEROTONIN SYNDROME [None]
  - BURNING SENSATION [None]
  - DEPRESSION [None]
  - HYPERSENSITIVITY [None]
  - EMOTIONAL DISTRESS [None]
  - PERSONALITY CHANGE [None]
  - STRESS [None]
  - MENTAL DISORDER [None]
  - FEAR [None]
  - ENERGY INCREASED [None]
  - PANIC ATTACK [None]
  - WITHDRAWAL SYNDROME [None]
  - DRUG INEFFECTIVE [None]
  - ANXIETY [None]
  - HOMICIDAL IDEATION [None]
  - ABNORMAL BEHAVIOUR [None]
  - HYPERAESTHESIA [None]
